FAERS Safety Report 5936770-0 (Version None)
Quarter: 2008Q4

REPORT INFORMATION
  Report Type: 
  Country: None (occurrence: None)
  Receive Date: 20081022
  Receipt Date: 20081015
  Transmission Date: 20090506
  Serious: Yes (Hospitalization, Other)
  Sender: FDA-Public Use
  Company Number: 200814101

PATIENT
  Age: 11 Year
  Sex: Female

DRUGS (1)
  1. VIVAGLOBIN [Suspect]
     Indication: EPSTEIN-BARR VIRUS INFECTION
     Dosage: 30 ML Q1W;SC
     Route: 058
     Dates: start: 20080301

REACTIONS (5)
  - ERYTHEMA [None]
  - INJECTION SITE INFECTION [None]
  - MASS [None]
  - PAIN [None]
  - TRANSMISSION OF AN INFECTIOUS AGENT VIA A MEDICINAL PRODUCT [None]
